FAERS Safety Report 4522886-2 (Version None)
Quarter: 2004Q4

REPORT INFORMATION
  Report Type: 
  Country: None (occurrence: None)
  Receive Date: 20041208
  Receipt Date: 20041130
  Transmission Date: 20050328
  Serious: Yes (Hospitalization)
  Sender: FDA-Public Use
  Company Number: 200410590BFR

PATIENT
  Age: 75 Year
  Sex: Female

DRUGS (12)
  1. ADALATE LP (NIFEDIPINE) [Suspect]
     Dosage: 40 MG, TOTAL DAILY, ORAL
     Route: 048
  2. HUMIRA [Suspect]
     Indication: POLYARTHRITIS
     Dosage: 40 MG, TOTAL DAILY, SUBCUTANEOUS
     Route: 058
     Dates: start: 20040201, end: 20040915
  3. HUMIRA [Suspect]
     Indication: RHEUMATOID ARTHRITIS
     Dosage: 40 MG, TOTAL DAILY, SUBCUTANEOUS
     Route: 058
     Dates: start: 20040201, end: 20040915
  4. LEVOTHYROX [Concomitant]
  5. LIPANTHYL [Concomitant]
  6. OMEPRAZOLE [Concomitant]
  7. OROCAL D (3) [Concomitant]
  8. DUPHALAC [Concomitant]
  9. PREDNISONE TAB [Concomitant]
  10. LASILIX [Concomitant]
  11. IMUREL [Concomitant]
  12. ASPEGIC BABY [Concomitant]

REACTIONS (2)
  - BRONCHIAL INFECTION [None]
  - UPPER RESPIRATORY TRACT INFECTION [None]
